FAERS Safety Report 9414799 (Version 2)
Quarter: 2013Q3

REPORT INFORMATION
  Report Type: Spontaneous
  Country: US (occurrence: None)
  Receive Date: 20130718
  Receipt Date: 20130726
  Transmission Date: 20140515
  Serious: Yes (Disabling)
  Sender: FDA-Public Use
  Company Number: 2013070168

PATIENT
  Age: 55 Year
  Sex: Female
  Weight: 68.95 kg

DRUGS (1)
  1. AZELASTINE HYDROCHLORIDE [Suspect]
     Indication: NASOPHARYNGITIS
     Dosage: IN
     Dates: start: 20130613, end: 20130613

REACTIONS (4)
  - Deafness neurosensory [None]
  - Product contamination [None]
  - Ear congestion [None]
  - Middle ear effusion [None]
